FAERS Safety Report 19284961 (Version 3)
Quarter: 2021Q2

REPORT INFORMATION
  Report Type: Spontaneous
  Country: JP (occurrence: JP)
  Receive Date: 20210521
  Receipt Date: 20210628
  Transmission Date: 20210717
  Serious: Yes (Other)
  Sender: FDA-Public Use
  Company Number: JP-ELI_LILLY_AND_COMPANY-JP202105005350

PATIENT
  Age: 46 Year
  Sex: Male

DRUGS (2)
  1. ROSUVASTATIN. [Concomitant]
     Active Substance: ROSUVASTATIN
     Indication: DYSLIPIDAEMIA
     Dosage: 2.5 MG, DAILY
     Route: 048
  2. LYUMJEV [Suspect]
     Active Substance: INSULIN LISPRO-AABC
     Indication: DIABETES MELLITUS
     Dosage: 48.9 INTERNATIONAL UNIT, DAILY
     Route: 058
     Dates: start: 202012

REACTIONS (4)
  - Infusion site pain [Recovered/Resolved]
  - Infusion site induration [Recovered/Resolved]
  - Infusion site pruritus [Recovered/Resolved]
  - Hyperglycaemia [Recovered/Resolved]
